FAERS Safety Report 24720996 (Version 1)
Quarter: 2024Q4

REPORT INFORMATION
  Report Type: Spontaneous
  Country: US (occurrence: US)
  Receive Date: 20241211
  Receipt Date: 20241211
  Transmission Date: 20250114
  Serious: No
  Sender: ROCHE
  Company Number: US-ROCHE-10000153702

PATIENT
  Sex: Female

DRUGS (3)
  1. VALGANCICLOVIR [Suspect]
     Active Substance: VALGANCICLOVIR
     Indication: Product used for unknown indication
     Route: 065
  2. DEXAMETHASONE [Suspect]
     Active Substance: DEXAMETHASONE
     Indication: Product used for unknown indication
     Route: 065
  3. ELREXFIO [Suspect]
     Active Substance: ELRANATAMAB-BCMM
     Indication: Product used for unknown indication
     Route: 065

REACTIONS (5)
  - Neuropathy peripheral [Unknown]
  - Skin exfoliation [Recovering/Resolving]
  - Cough [Recovered/Resolved]
  - Constipation [Recovered/Resolved]
  - White blood cell count decreased [Unknown]
